FAERS Safety Report 14283278 (Version 2)
Quarter: 2018Q1

REPORT INFORMATION
  Report Type: Spontaneous
  Country: US (occurrence: US)
  Receive Date: 20171213
  Receipt Date: 20180319
  Transmission Date: 20180508
  Serious: No
  Sender: FDA-Public Use
  Company Number: US-GLAXOSMITHKLINE-US2017191600

PATIENT
  Age: 33 Year
  Sex: Male

DRUGS (2)
  1. MEMBERS MARK NICOTINE [Suspect]
     Active Substance: NICOTINE
     Dosage: UNK
  2. MEMBERS MARK NICOTINE [Suspect]
     Active Substance: NICOTINE
     Indication: SMOKING CESSATION THERAPY
     Dosage: 21 MG, UNK
     Dates: start: 20171210, end: 20171210

REACTIONS (2)
  - Application site pain [Recovered/Resolved]
  - Product quality issue [Unknown]

NARRATIVE: CASE EVENT DATE: 20171210
